FAERS Safety Report 20780939 (Version 5)
Quarter: 2022Q4

REPORT INFORMATION
  Report Type: Report from Study
  Country: US (occurrence: US)
  Receive Date: 20220504
  Receipt Date: 20221107
  Transmission Date: 20230112
  Serious: Yes (Hospitalization, Other)
  Sender: FDA-Public Use
  Company Number: US-BRISTOL-MYERS SQUIBB COMPANY-2022-025147

PATIENT
  Age: 78 Year
  Sex: Female
  Weight: 58.05 kg

DRUGS (2)
  1. POMALYST [Suspect]
     Active Substance: POMALIDOMIDE
     Indication: Plasma cell myeloma
     Dosage: 3 MG 1 CAPSULE DAILY/21 DAYS ON, 7 DAYS OFF??CA2473A, C2474I: 31-MAR-2025?C2513A; 30-NOV-2025
     Route: 048
     Dates: start: 202112
  2. ELIQUIS [Concomitant]
     Active Substance: APIXABAN
     Indication: Product used for unknown indication
     Route: 065

REACTIONS (9)
  - Gallbladder disorder [Unknown]
  - Hypotension [Unknown]
  - Post herpetic neuralgia [Unknown]
  - Gastrointestinal disorder [Unknown]
  - Nausea [Unknown]
  - Diarrhoea [Unknown]
  - Fall [Unknown]
  - Pain [Unknown]
  - Pancreatic disorder [Unknown]

NARRATIVE: CASE EVENT DATE: 20221001
